FAERS Safety Report 6882332-0 (Version None)
Quarter: 2010Q3

REPORT INFORMATION
  Report Type: 
  Country: None (occurrence: None)
  Receive Date: 20100729
  Receipt Date: 20100114
  Transmission Date: 20110219
  Serious: No
  Sender: FDA-Public Use
  Company Number: US-MYLANLABS-2010S1000773

PATIENT
  Age: 51 Year
  Sex: Female

DRUGS (4)
  1. LEVOTHYROXINE SODIUM [Suspect]
     Indication: HYPOTHYROIDISM
     Route: 048
  2. EXCEDRIN (MIGRAINE) [Concomitant]
     Indication: PAIN
     Route: 048
  3. PROAIR HFA [Concomitant]
     Indication: ASTHMA
  4. LISINOPRIL [Concomitant]
     Indication: BLOOD PRESSURE INCREASED
     Route: 048

REACTIONS (3)
  - PAIN IN EXTREMITY [None]
  - REACTION TO DRUG EXCIPIENTS [None]
  - SOFT TISSUE INFLAMMATION [None]
